FAERS Safety Report 6523406-3 (Version None)
Quarter: 2009Q4

REPORT INFORMATION
  Report Type: 
  Country: None (occurrence: None)
  Receive Date: 20091231
  Receipt Date: 20091130
  Transmission Date: 20100525
  Serious: No
  Sender: FDA-Public Use
  Company Number: US-BAYER-200917333BCC

PATIENT
  Age: 64 Year
  Sex: Male
  Weight: 70 kg

DRUGS (4)
  1. ALEVE (CAPLET) [Suspect]
     Indication: MUSCLE SPASMS
     Dosage: TOTAL DAILY DOSE: 220 MG  UNIT DOSE: 220 MG
     Route: 048
     Dates: start: 20091127
  2. ALEVE (CAPLET) [Suspect]
     Dosage: UNIT DOSE: 220 MG
     Route: 048
     Dates: start: 20091128
  3. VENLAFAXINE [Concomitant]
     Route: 065
  4. SIMVASTATIN [Concomitant]
     Route: 065

REACTIONS (1)
  - MUSCLE SPASMS [None]
